FAERS Safety Report 6820975-0 (Version None)
Quarter: 2010Q3

REPORT INFORMATION
  Report Type: 
  Country: None (occurrence: None)
  Receive Date: 20100707
  Receipt Date: 20080116
  Transmission Date: 20110219
  Serious: No
  Sender: FDA-Public Use
  Company Number: US-PFIZER INC-2007061337

PATIENT
  Sex: Female
  Weight: 54.43 kg

DRUGS (4)
  1. ZOLOFT [Suspect]
     Indication: DEPRESSION
     Route: 048
     Dates: start: 20060901
  2. ZOLOFT [Suspect]
     Indication: MIGRAINE
  3. VITAMINS [Concomitant]
  4. PREVACID [Concomitant]

REACTIONS (1)
  - DRUG SCREEN FALSE POSITIVE [None]
